FAERS Safety Report 19474234 (Version 5)
Quarter: 2022Q4

REPORT INFORMATION
  Report Type: Spontaneous
  Country: CA (occurrence: CA)
  Receive Date: 20210629
  Receipt Date: 20221003
  Transmission Date: 20230112
  Serious: Yes (Other)
  Sender: FDA-Public Use
  Company Number: CA-PFIZER INC-2021723483

PATIENT
  Age: 61 Year
  Sex: Female
  Weight: 81 kg

DRUGS (8)
  1. RUXIENCE [Suspect]
     Active Substance: RITUXIMAB-PVVR
     Indication: Rheumatoid arthritis
     Dosage: 1000 MG ON DAY 1 AND DAY 15
     Route: 042
     Dates: start: 20210615
  2. RUXIENCE [Suspect]
     Active Substance: RITUXIMAB-PVVR
     Dosage: 1000 MG ON DAY 1 AND DAY 15
     Route: 042
     Dates: start: 20220209
  3. RUXIENCE [Suspect]
     Active Substance: RITUXIMAB-PVVR
     Dosage: 1000 MG ON DAY 1 AND DAY 15
     Route: 042
     Dates: start: 20220223
  4. RUXIENCE [Suspect]
     Active Substance: RITUXIMAB-PVVR
     Dosage: 1000 MG (1000 MG ON DAY 1 AND DAY 15)
     Route: 042
     Dates: start: 20220913
  5. RUXIENCE [Suspect]
     Active Substance: RITUXIMAB-PVVR
     Dosage: 1000 MG (1000 MG ON DAY 1 AND DAY 15)
     Route: 042
     Dates: start: 20220926
  6. ENBREL [Concomitant]
     Active Substance: ETANERCEPT
     Dosage: 1 DF
  7. METHOTREXATE [Concomitant]
     Active Substance: METHOTREXATE
     Dosage: 1 DF
  8. PREDNISONE [Concomitant]
     Active Substance: PREDNISONE
     Dosage: UNK

REACTIONS (5)
  - Cataract [Unknown]
  - Off label use [Unknown]
  - Intentional product use issue [Unknown]
  - Inappropriate schedule of product administration [Unknown]
  - Blood pressure systolic decreased [Not Recovered/Not Resolved]

NARRATIVE: CASE EVENT DATE: 20210615
